FAERS Safety Report 15016166 (Version 1)
Quarter: 2018Q2

REPORT INFORMATION
  Report Type: Spontaneous
  Country: AU (occurrence: AU)
  Receive Date: 20180615
  Receipt Date: 20180615
  Transmission Date: 20180711
  Serious: Yes (Hospitalization, Other)
  Sender: FDA-Public Use
  Company Number: AU-PFIZER INC-2018105313

PATIENT
  Age: 70 Year
  Sex: Male

DRUGS (2)
  1. METHOTREXATE SODIUM. [Suspect]
     Active Substance: METHOTREXATE SODIUM
     Indication: RHEUMATOID ARTHRITIS
     Dosage: 20 MG, ONCE A WEEK
     Dates: start: 201509, end: 201703
  2. SOLONE /00016201/ [Concomitant]
     Dosage: 25 MG, UNK
     Dates: start: 2015

REACTIONS (11)
  - Immune system disorder [Unknown]
  - Cough [Unknown]
  - Quality of life decreased [Unknown]
  - Hyperhidrosis [Not Recovered/Not Resolved]
  - Pulmonary fibrosis [Unknown]
  - Enteritis infectious [Unknown]
  - Abdominal distension [Not Recovered/Not Resolved]
  - Photopsia [Unknown]
  - Intestinal obstruction [Unknown]
  - Acne [Not Recovered/Not Resolved]
  - Influenza [Unknown]

NARRATIVE: CASE EVENT DATE: 2015
